FAERS Safety Report 21842226 (Version 1)
Quarter: 2023Q1

REPORT INFORMATION
  Report Type: Spontaneous
  Country: US (occurrence: US)
  Receive Date: 20230110
  Receipt Date: 20230110
  Transmission Date: 20230418
  Serious: Yes (Other)
  Sender: FDA-Public Use
  Company Number: US-STRIDES ARCOLAB LIMITED-2022SP013897

PATIENT
  Age: 62 Year
  Sex: Female

DRUGS (12)
  1. METHOTREXATE [Suspect]
     Active Substance: METHOTREXATE
     Indication: Sarcomatoid carcinoma
     Dosage: UNK (MVAC REGIMEN) (2 CYCLE) (AS A PART OF METHOTREXATE, VINBLASTINE, DOXORUBICIN AND CISPLATIN)
     Route: 065
     Dates: start: 201904
  2. METHOTREXATE [Suspect]
     Active Substance: METHOTREXATE
     Indication: Transitional cell carcinoma
  3. METHOTREXATE [Suspect]
     Active Substance: METHOTREXATE
     Indication: Metastatic neoplasm
  4. VINBLASTINE [Suspect]
     Active Substance: VINBLASTINE
     Indication: Sarcomatoid carcinoma
     Dosage: UNK (MVAC REGIMEN) (2 CYCLE)(AS A PART OF METHOTREXATE, VINBLASTINE, DOXORUBICINE AND CISPLATIN)
     Route: 065
     Dates: start: 201904
  5. VINBLASTINE [Suspect]
     Active Substance: VINBLASTINE
     Indication: Transitional cell carcinoma
  6. VINBLASTINE [Suspect]
     Active Substance: VINBLASTINE
     Indication: Metastatic neoplasm
  7. DOXORUBICIN [Suspect]
     Active Substance: DOXORUBICIN
     Indication: Sarcomatoid carcinoma
     Dosage: UNK (MVAC REGIMEN) (2 CYCLE (AS A PART OF METHOTREXATE, VINBLASTINE, DOXORUBICIN AND CISPLATIN   )
     Route: 065
     Dates: start: 201904
  8. DOXORUBICIN [Suspect]
     Active Substance: DOXORUBICIN
     Indication: Transitional cell carcinoma
  9. DOXORUBICIN [Suspect]
     Active Substance: DOXORUBICIN
     Indication: Metastatic neoplasm
  10. CISPLATIN [Suspect]
     Active Substance: CISPLATIN
     Indication: Sarcomatoid carcinoma
     Dosage: UNK (MVAC REGIMEN) (2 CYCLE)(AS A PART OF METHOTREXATE, VINBLASTINE, DOXORUBICIN AND CISPLATIN   )
     Route: 065
     Dates: start: 201904
  11. CISPLATIN [Suspect]
     Active Substance: CISPLATIN
     Indication: Transitional cell carcinoma
     Dosage: UNK (AS A PART OF CISPLATIN AND GEMCITABINE REGIMEN  )
     Route: 065
     Dates: start: 2019, end: 2019
  12. CISPLATIN [Suspect]
     Active Substance: CISPLATIN
     Indication: Metastatic neoplasm

REACTIONS (3)
  - Hepatic function abnormal [Unknown]
  - Pseudomonal bacteraemia [Unknown]
  - Off label use [Unknown]

NARRATIVE: CASE EVENT DATE: 20190101
